FAERS Safety Report 8467116 (Version 5)
Quarter: 2012Q4

REPORT INFORMATION
  Report Type: Report from Study
  Country: JP (occurrence: JP)
  Receive Date: 20120320
  Receipt Date: 20121128
  Transmission Date: 20130627
  Serious: Yes (Hospitalization, Other)
  Sender: FDA-Public Use
  Company Number: JP-VERTEX PHARMACEUTICAL INC.-AE-2012-003666

PATIENT
  Age: 62 Year
  Sex: Male

DRUGS (19)
  1. VX-950 (TELAPREVIR) [Suspect]
     Indication: CHRONIC HEPATITIS C
     Dosage: 2250 mg, qd
     Route: 048
     Dates: start: 20120207, end: 20120305
  2. VX-950 (TELAPREVIR) [Suspect]
     Dosage: 1000 mg, qd
     Route: 048
     Dates: start: 20120306, end: 20120424
  3. VX-950 (TELAPREVIR) [Suspect]
     Dosage: 500 mg, qd
     Route: 048
     Dates: start: 20120425, end: 20120501
  4. RIBAVIRIN [Suspect]
     Indication: CHRONIC HEPATITIS C
     Dosage: 800 mg, qd
     Route: 048
     Dates: start: 20120207, end: 20120313
  5. RIBAVIRIN [Suspect]
     Dosage: 600 mg, qd
     Route: 048
     Dates: start: 20120314, end: 20120424
  6. RIBAVIRIN [Suspect]
     Dosage: 200 mg, qd
     Route: 048
     Dates: start: 20120425, end: 20120517
  7. PEGINTERFERON ALFA-2B [Suspect]
     Indication: CHRONIC HEPATITIS C
     Dosage: 100 ?g, qw
     Route: 058
     Dates: start: 20120207
  8. PEGINTERFERON ALFA-2B [Suspect]
     Dosage: 1.61 ?g/kg, qw
     Route: 058
     Dates: end: 20120515
  9. TALION                             /01587402/ [Concomitant]
     Dosage: 20 mg, qd
     Route: 048
     Dates: start: 20120207
  10. TAKEPRON [Concomitant]
     Dosage: 15 mg, prn
     Route: 048
  11. BUSCOPAN [Concomitant]
     Dosage: 20 mg, prn
     Route: 048
  12. PREDONINE                          /00016201/ [Concomitant]
     Route: 048
  13. REBAMIPIDE [Concomitant]
     Route: 048
  14. REBAMIPIDE [Concomitant]
     Dosage: 300 mg, qd
     Route: 048
     Dates: start: 20120414, end: 20120617
  15. BONALON [Concomitant]
     Dosage: UNK
     Route: 048
  16. BONALON [Concomitant]
     Dosage: 35 mg, qw
     Route: 048
     Dates: start: 20120414, end: 20120617
  17. CEFDINIR [Concomitant]
     Dosage: UNK
     Route: 048
  18. CEFDINIR [Concomitant]
     Dosage: 300 mg, qd
     Route: 048
     Dates: start: 20120426, end: 20120509
  19. ALESION [Concomitant]
     Route: 048

REACTIONS (5)
  - Renal disorder [Recovered/Resolved]
  - Anaemia [Recovered/Resolved]
  - Malnutrition [None]
  - Rash [None]
  - Malaise [None]
